FAERS Safety Report 5035658-X (Version None)
Quarter: 2006Q2

REPORT INFORMATION
  Report Type: 
  Country: None (occurrence: None)
  Receive Date: 20060627
  Receipt Date: 20060615
  Transmission Date: 20061013
  Serious: Yes (Death)
  Sender: FDA-Public Use
  Company Number: VE-SANOFI-SYNTHELABO-A01200604614

PATIENT
  Age: 74 Year
  Sex: Male

DRUGS (1)
  1. PLAVIX [Suspect]
     Indication: ARTERIAL BYPASS OPERATION
     Route: 048

REACTIONS (4)
  - BRAIN STEM HAEMORRHAGE [None]
  - INTRACRANIAL PRESSURE INCREASED [None]
  - MYELODYSPLASTIC SYNDROME [None]
  - THROMBOCYTOPENIA [None]
